FAERS Safety Report 5966254-5 (Version None)
Quarter: 2008Q4

REPORT INFORMATION
  Report Type: 
  Country: None (occurrence: None)
  Receive Date: 20081119
  Receipt Date: 20080917
  Transmission Date: 20090506
  Serious: No
  Sender: FDA-Public Use
  Company Number: WAES 0809USA02615

PATIENT
  Age: 51 Year
  Sex: Female

DRUGS (9)
  1. JANUVIA [Suspect]
     Indication: DIABETES MELLITUS
     Dosage: 100 MG DAILY PO
     Route: 048
     Dates: start: 20080916, end: 20080917
  2. CADUET [Concomitant]
  3. COREG CR [Concomitant]
  4. DIOVAN HCT [Concomitant]
  5. LEXAPRO [Concomitant]
  6. SYNTHROID [Concomitant]
  7. WELLBUTRIN [Concomitant]
  8. THERAPY UNSPECIFIED [Concomitant]
  9. ASPIRIN [Concomitant]

REACTIONS (1)
  - RASH PRURITIC [None]
